FAERS Safety Report 18151278 (Version 1)
Quarter: 2020Q3

REPORT INFORMATION
  Report Type: Spontaneous
  Country: TR (occurrence: TR)
  Receive Date: 20200814
  Receipt Date: 20200814
  Transmission Date: 20201103
  Serious: Yes (Hospitalization, Other)
  Sender: FDA-Public Use
  Company Number: TR-AMGEN-TURSP2020119060

PATIENT
  Age: 75 Year
  Sex: Female

DRUGS (4)
  1. KYPROLIS [Suspect]
     Active Substance: CARFILZOMIB
     Indication: PRODUCT USED FOR UNKNOWN INDICATION
     Dosage: 20 MILLIGRAM/SQ. METER (30 MG), QD
     Route: 042
     Dates: start: 20200706, end: 20200707
  2. KYPROLIS [Suspect]
     Active Substance: CARFILZOMIB
     Dosage: 20 MILLIGRAM/SQ. METER (30 MG), QD
     Route: 042
     Dates: start: 20200713, end: 20200714
  3. DEXAMETHASONE. [Concomitant]
     Active Substance: DEXAMETHASONE
     Indication: PRODUCT USED FOR UNKNOWN INDICATION
     Dosage: UNK
     Route: 065
  4. DIGOXIN. [Suspect]
     Active Substance: DIGOXIN
     Indication: PRODUCT USED FOR UNKNOWN INDICATION
     Dosage: UNK
     Route: 065

REACTIONS (8)
  - Communication disorder [Unknown]
  - Hypoalbuminaemia [Not Recovered/Not Resolved]
  - Urinary tract infection [Unknown]
  - Somnolence [Unknown]
  - Hypokalaemia [Not Recovered/Not Resolved]
  - General physical condition abnormal [Unknown]
  - Hypomagnesaemia [Not Recovered/Not Resolved]
  - Cardioactive drug level increased [Unknown]

NARRATIVE: CASE EVENT DATE: 2020
